FAERS Safety Report 10810840 (Version 1)
Quarter: 2015Q1

REPORT INFORMATION
  Report Type: Spontaneous
  Country: US (occurrence: None)
  Receive Date: 20150212
  Receipt Date: 20150212
  Transmission Date: 20150721
  Serious: No
  Sender: FDA-Public Use
  Company Number: None

PATIENT
  Age: 6 Year
  Sex: Male
  Weight: 17.69 kg

DRUGS (1)
  1. VYVANSE [Suspect]
     Active Substance: LISDEXAMFETAMINE DIMESYLATE
     Indication: ATTENTION DEFICIT/HYPERACTIVITY DISORDER
     Dosage: 1 CAPSULE ONCE DAIL TAKEN BY MOUTH
     Route: 048
     Dates: start: 20141205, end: 20150205

REACTIONS (5)
  - Drug ineffective [None]
  - Depression [None]
  - Product quality issue [None]
  - Drug withdrawal syndrome [None]
  - Product physical issue [None]

NARRATIVE: CASE EVENT DATE: 20150108
